FAERS Safety Report 21594942 (Version 1)
Quarter: 2022Q4

REPORT INFORMATION
  Report Type: Spontaneous
  Country: US (occurrence: US)
  Receive Date: 20221115
  Receipt Date: 20221115
  Transmission Date: 20230113
  Serious: No
  Sender: FDA-Public Use
  Company Number: US-AUROBINDO-AUR-APL-2021-050102

PATIENT
  Age: 74 Year
  Sex: Male
  Weight: 78.458 kg

DRUGS (4)
  1. MODAFINIL [Suspect]
     Active Substance: MODAFINIL
     Indication: Fatigue
     Dosage: 1 DOSAGE FORM
     Route: 065
  2. MODAFINIL [Suspect]
     Active Substance: MODAFINIL
     Indication: Somnolence
     Dosage: 0.5 MILLIGRAM
     Route: 065
  3. MODAFINIL [Suspect]
     Active Substance: MODAFINIL
     Dosage: 50 MILLIGRAM, ONCE A DAY
     Route: 048
     Dates: start: 20211124
  4. MODAFINIL [Suspect]
     Active Substance: MODAFINIL
     Dosage: 25 MILLIGRAM, ONCE A DAY
     Route: 048

REACTIONS (3)
  - Fatigue [Unknown]
  - Insomnia [Unknown]
  - Product packaging quantity issue [Unknown]

NARRATIVE: CASE EVENT DATE: 20211123
